FAERS Safety Report 16373304 (Version 3)
Quarter: 2020Q2

REPORT INFORMATION
  Report Type: Report from Study
  Country: CL (occurrence: CL)
  Receive Date: 20190530
  Receipt Date: 20200622
  Transmission Date: 20200713
  Serious: Yes (Other)
  Sender: FDA-Public Use
  Company Number: PHHY2019CL032900

PATIENT
  Age: 60 Year
  Sex: Female
  Weight: 52.5 kg

DRUGS (2)
  1. GLIVEC [Suspect]
     Active Substance: IMATINIB MESYLATE
     Indication: GASTROINTESTINAL STROMAL TUMOUR
     Dosage: 400 MG, UNK
     Route: 048
  2. GLIVEC [Suspect]
     Active Substance: IMATINIB MESYLATE
     Dosage: 300 MG, QD
     Route: 048

REACTIONS (4)
  - Suspected COVID-19 [Unknown]
  - Decreased immune responsiveness [Unknown]
  - Neutropenia [Recovered/Resolved]
  - Neutrophil percentage decreased [Recovering/Resolving]

NARRATIVE: CASE EVENT DATE: 20190118
